FAERS Safety Report 13605956 (Version 2)
Quarter: 2018Q4

REPORT INFORMATION
  Report Type: Spontaneous
  Country: US (occurrence: US)
  Receive Date: 20170602
  Receipt Date: 20181029
  Transmission Date: 20190204
  Serious: No
  Sender: FDA-Public Use
  Company Number: US-PFIZER INC-2017242014

PATIENT
  Age: 62 Year
  Sex: Female
  Weight: 90.72 kg

DRUGS (2)
  1. GABAPENTIN. [Suspect]
     Active Substance: GABAPENTIN
     Dosage: 300 MG, 4X/DAY, (300 MG, 4 TIMES A DAY, BIG YELLOW CAPSULES THAT SAY 125, BY MOUTH)
     Route: 048
     Dates: start: 20170222
  2. GABAPENTIN. [Suspect]
     Active Substance: GABAPENTIN
     Indication: FIBROMYALGIA
     Dosage: 300 MG, 3X/DAY
     Route: 048
     Dates: start: 2017

REACTIONS (9)
  - Confusional state [Unknown]
  - Impaired driving ability [Not Recovered/Not Resolved]
  - Intentional product use issue [Unknown]
  - Loss of personal independence in daily activities [Unknown]
  - Drug ineffective for unapproved indication [Unknown]
  - Disorientation [Unknown]
  - Thinking abnormal [Unknown]
  - Feeling abnormal [Unknown]
  - Sleep disorder [Unknown]

NARRATIVE: CASE EVENT DATE: 2017
